FAERS Safety Report 4764875-9 (Version None)
Quarter: 2005Q3

REPORT INFORMATION
  Report Type: 
  Country: None (occurrence: None)
  Receive Date: 20050909
  Receipt Date: 20050829
  Transmission Date: 20060218
  Serious: Yes (Hospitalization)
  Sender: FDA-Public Use
  Company Number: BR-JNJFOC-20050901272

PATIENT
  Age: 23 Year
  Weight: 74 kg

DRUGS (1)
  1. IMOSEC [Suspect]

REACTIONS (2)
  - HYPOAESTHESIA [None]
  - MUSCLE RIGIDITY [None]
